FAERS Safety Report 14700922 (Version 2)
Quarter: 2018Q3

REPORT INFORMATION
  Report Type: Spontaneous
  Country: US (occurrence: US)
  Receive Date: 20180330
  Receipt Date: 20180718
  Transmission Date: 20181010
  Serious: Yes (Death, Hospitalization, Other)
  Sender: FDA-Public Use
  Company Number: US-PFIZER INC-2018131546

PATIENT
  Age: 71 Year
  Sex: Female
  Weight: 38 kg

DRUGS (2)
  1. XELJANZ XR [Suspect]
     Active Substance: TOFACITINIB CITRATE
     Dosage: 11 MG, 1X/DAY
  2. XELJANZ XR [Suspect]
     Active Substance: TOFACITINIB CITRATE
     Dosage: 11 MG, 1X/DAY

REACTIONS (6)
  - Ill-defined disorder [Fatal]
  - Bile duct obstruction [Unknown]
  - Dyspnoea [Fatal]
  - Renal disorder [Fatal]
  - Gallbladder disorder [Fatal]
  - Arthritis [Fatal]

NARRATIVE: CASE EVENT DATE: 2016
